FAERS Safety Report 4959664-6 (Version None)
Quarter: 2006Q1

REPORT INFORMATION
  Report Type: 
  Country: None (occurrence: None)
  Receive Date: 20060328
  Receipt Date: 20060316
  Transmission Date: 20060701
  Serious: Yes (Hospitalization, Other)
  Sender: FDA-Public Use
  Company Number: 2006038140

PATIENT
  Sex: Male

DRUGS (1)
  1. MISOPROSTOL [Suspect]
     Indication: LABOUR INDUCTION
     Dosage: 2-1/2 TABLET + ONE TABLET ( 2 DOSES), ORAL
     Route: 048
     Dates: start: 20060221, end: 20060201

REACTIONS (7)
  - ADVERSE EVENT [None]
  - CAESAREAN SECTION [None]
  - CEREBRAL ARTERY OCCLUSION [None]
  - CONVULSION NEONATAL [None]
  - DRUG EXPOSURE DURING PREGNANCY [None]
  - INFANTILE APNOEIC ATTACK [None]
  - NEONATAL DISORDER [None]
